FAERS Safety Report 7334527-X (Version None)
Quarter: 2011Q1

REPORT INFORMATION
  Report Type: 
  Country: None (occurrence: None)
  Receive Date: 20110307
  Receipt Date: 20110222
  Transmission Date: 20110831
  Serious: Yes (Hospitalization)
  Sender: FDA-Public Use
  Company Number: FR-ELI_LILLY_AND_COMPANY-FR201101004844

PATIENT
  Age: 59 Year
  Sex: Female
  Weight: 85 kg

DRUGS (10)
  1. GLUCOPHAGE [Concomitant]
     Indication: DIABETES MELLITUS
     Route: 048
  2. MONICOR LP [Concomitant]
     Indication: CARDIAC FAILURE
     Route: 048
  3. NOZINAN [Concomitant]
     Indication: PSYCHOTIC DISORDER
     Dosage: 275 DROPS DAILY
     Route: 048
  4. LAMICTAL [Concomitant]
     Route: 048
  5. LEVOTHYROXINE SODIUM [Concomitant]
     Indication: HYPOTHYROIDISM
     Route: 048
  6. ZYPADHERA [Suspect]
     Indication: PSYCHOTIC DISORDER
     Dosage: 300 MG, EVERY TWO WEEKS
     Route: 030
     Dates: start: 20101214, end: 20110110
  7. LASIX [Concomitant]
     Indication: CARDIAC FAILURE
  8. ASPEGIC 325 [Concomitant]
     Indication: MYOCARDIAL INFARCTION
     Route: 048
  9. DAFLON [Concomitant]
     Indication: CARDIAC FAILURE
     Route: 048
  10. ZYPREXA [Suspect]
     Indication: PSYCHOTIC DISORDER
     Dosage: 30 MG, DAILY (1/D)
     Route: 048
     Dates: start: 20101110, end: 20101213

REACTIONS (19)
  - COGNITIVE DISORDER [None]
  - OVERDOSE [None]
  - SPEECH DISORDER [None]
  - DISORIENTATION [None]
  - EXTRAPYRAMIDAL DISORDER [None]
  - CONFUSIONAL STATE [None]
  - TACHYCARDIA [None]
  - DIZZINESS [None]
  - CHEST PAIN [None]
  - LOSS OF CONSCIOUSNESS [None]
  - ANXIETY [None]
  - AGITATION [None]
  - HALLUCINATION [None]
  - GAIT DISTURBANCE [None]
  - CARDIAC FAILURE [None]
  - SEDATION [None]
  - HYPERTENSION [None]
  - DYSPNOEA [None]
  - FATIGUE [None]
